FAERS Safety Report 20980422 (Version 1)
Quarter: 2022Q2

REPORT INFORMATION
  Report Type: Spontaneous
  Country: GR (occurrence: GR)
  Receive Date: 20220620
  Receipt Date: 20220620
  Transmission Date: 20220721
  Serious: Yes (Other)
  Sender: FDA-Public Use
  Company Number: GR-CELLTRION INC.-2022GR009208

PATIENT

DRUGS (1)
  1. INFLIXIMAB [Suspect]
     Active Substance: INFLIXIMAB
     Indication: Ankylosing spondylitis
     Dosage: 2X100MG/8 WEEKS
     Route: 042

REACTIONS (4)
  - Psoriasis [Unknown]
  - Eczema [Unknown]
  - Therapy interrupted [Unknown]
  - Underdose [Unknown]
